FAERS Safety Report 9975332 (Version 1)
Quarter: 2014Q1

REPORT INFORMATION
  Report Type: Report from Study
  Country: US (occurrence: US)
  Receive Date: 20140306
  Receipt Date: 20140306
  Transmission Date: 20141002
  Serious: No
  Sender: FDA-Public Use
  Company Number: US-ABBVIE-13P-163-1159640-00

PATIENT
  Age: 35 Year
  Sex: Female

DRUGS (7)
  1. HUMIRA [Suspect]
     Indication: CROHN^S DISEASE
     Dates: start: 20130927, end: 20130927
  2. HUMIRA [Suspect]
     Dates: start: 20131011
  3. PENTASA [Concomitant]
     Indication: CROHN^S DISEASE
     Dosage: 4 GRAM DAILY
  4. DILTIAZEM [Concomitant]
     Indication: MIGRAINE
     Dosage: 120 MG DAILY
  5. CLARITIN [Concomitant]
     Indication: HYPERSENSITIVITY
     Dosage: 10 MG DAILY
  6. EFFEXOR XR [Concomitant]
     Indication: SOCIAL PHOBIA
     Dosage: 150 MG DAILY
  7. AZATHIOPRINE [Concomitant]
     Indication: CROHN^S DISEASE
     Dosage: 100 MG DAILY

REACTIONS (5)
  - Arthralgia [Not Recovered/Not Resolved]
  - Arthralgia [Not Recovered/Not Resolved]
  - Arthralgia [Not Recovered/Not Resolved]
  - Arthralgia [Not Recovered/Not Resolved]
  - Injection site swelling [Recovered/Resolved]
